FAERS Safety Report 9399082 (Version 2)
Quarter: 2013Q4

REPORT INFORMATION
  Report Type: Report from Study
  Country: AR (occurrence: AR)
  Receive Date: 20130715
  Receipt Date: 20131227
  Transmission Date: 20140711
  Serious: Yes (Other)
  Sender: FDA-Public Use
  Company Number: AR-ROCHE-1245270

PATIENT
  Age: 51 Year
  Sex: Female

DRUGS (1)
  1. OMALIZUMAB [Suspect]
     Indication: ASTHMA
     Route: 058
     Dates: start: 2011

REACTIONS (6)
  - Tympanic membrane perforation [Not Recovered/Not Resolved]
  - Obstructive airways disorder [Not Recovered/Not Resolved]
  - General physical health deterioration [Unknown]
  - Bronchial obstruction [Unknown]
  - Nasal polyps [Unknown]
  - Influenza [Unknown]
